FAERS Safety Report 14407611 (Version 1)
Quarter: 2018Q1

REPORT INFORMATION
  Report Type: Spontaneous
  Country: US (occurrence: US)
  Receive Date: 20180116
  Receipt Date: 20180116
  Transmission Date: 20180509
  Serious: Yes (Other)
  Sender: FDA-Public Use
  Company Number: None

PATIENT
  Sex: Female
  Weight: 118.8 kg

DRUGS (1)
  1. LEVOFLOXCIN 500 MG TABS [Suspect]
     Active Substance: LEVOFLOXACIN
     Indication: PNEUMONIA
     Dates: start: 20170831, end: 20170906

REACTIONS (4)
  - Anosmia [None]
  - Visual impairment [None]
  - Ageusia [None]
  - Hypoacusis [None]

NARRATIVE: CASE EVENT DATE: 20170831
